FAERS Safety Report 7668926-3 (Version None)
Quarter: 2011Q3

REPORT INFORMATION
  Report Type: 
  Country: None (occurrence: None)
  Receive Date: 20110808
  Receipt Date: 20110719
  Transmission Date: 20111222
  Serious: Yes (Death)
  Sender: FDA-Public Use
  Company Number: US-GLAXOSMITHKLINE-A0886515A

PATIENT
  Age: 56 Year
  Sex: Female
  Weight: 110 kg

DRUGS (6)
  1. QUINAPRIL HCL [Concomitant]
  2. AVANDAMET [Suspect]
     Indication: DIABETES MELLITUS
     Route: 048
  3. METFORMIN HCL [Concomitant]
  4. AVANDIA [Suspect]
     Indication: DIABETES MELLITUS
     Dosage: 8MG PER DAY
     Route: 048
     Dates: start: 20010320, end: 20081108
  5. GLIPIZIDE [Concomitant]
  6. ZOCOR [Concomitant]

REACTIONS (5)
  - PNEUMONIA ASPIRATION [None]
  - PNEUMONIA NECROTISING [None]
  - LEFT VENTRICULAR HYPERTROPHY [None]
  - ARTERIOSCLEROSIS [None]
  - CARDIO-RESPIRATORY ARREST [None]
